FAERS Safety Report 4842231-2 (Version None)
Quarter: 2005Q4

REPORT INFORMATION
  Report Type: 
  Country: None (occurrence: None)
  Receive Date: 20051125
  Receipt Date: 20051116
  Transmission Date: 20060501
  Serious: Yes (Other)
  Sender: FDA-Public Use
  Company Number: 2005157068

PATIENT
  Age: 89 Year
  Sex: Female

DRUGS (6)
  1. DETROL LA [Suspect]
     Indication: BLADDER DISORDER
     Dosage: 4 MG (4 MG, 1 IN 1 D)
     Dates: start: 20040101
  2. LISINOPRIL [Concomitant]
  3. PREVACID [Concomitant]
  4. DURAGESIC-100 [Concomitant]
  5. HYDROCHLOROTHIAZIDE [Concomitant]
  6. DARVOCET [Concomitant]

REACTIONS (4)
  - ARTHRITIS [None]
  - FALL [None]
  - HIP FRACTURE [None]
  - UPPER LIMB FRACTURE [None]
